FAERS Safety Report 5062386-7 (Version None)
Quarter: 2006Q3

REPORT INFORMATION
  Report Type: 
  Country: None (occurrence: None)
  Receive Date: 20060726
  Receipt Date: 20060721
  Transmission Date: 20061208
  Serious: Yes (Hospitalization)
  Sender: FDA-Public Use
  Company Number: 455248

PATIENT
  Age: 79 Year
  Sex: Female

DRUGS (6)
  1. ARTIST [Suspect]
     Indication: CARDIAC VALVE DISEASE
     Route: 048
     Dates: start: 20050219, end: 20060116
  2. SPIRONOLACTONE [Suspect]
     Indication: ATRIAL FIBRILLATION
  3. METILDIGOXIN [Suspect]
     Indication: ATRIAL FIBRILLATION
  4. FUROSEMIDE [Concomitant]
     Indication: ATRIAL FIBRILLATION
  5. LOSARTAN POSTASSIUM [Concomitant]
     Indication: ATRIAL FIBRILLATION
  6. NICORANDIL [Concomitant]
     Indication: ATRIAL FIBRILLATION

REACTIONS (4)
  - CARDIAC FAILURE [None]
  - CONGESTIVE CARDIOMYOPATHY [None]
  - DYSPNOEA EXERTIONAL [None]
  - MITRAL VALVE PROLAPSE [None]
